FAERS Safety Report 25348374 (Version 1)
Quarter: 2025Q2

REPORT INFORMATION
  Report Type: Spontaneous
  Country: US (occurrence: None)
  Receive Date: 20250522
  Receipt Date: 20250522
  Transmission Date: 20250716
  Serious: Yes (Death, Life-Threatening, Hospitalization)
  Sender: FDA-CTU
  Company Number: None

PATIENT
  Age: 66 Year
  Sex: Male

DRUGS (6)
  1. ENFORTUMAB [Suspect]
     Active Substance: ENFORTUMAB
     Dates: start: 20250425
  2. prednisone 20mg daily [Concomitant]
     Dates: start: 20250427, end: 20250501
  3. hydrocortisone 100mg q6H IV [Concomitant]
     Dates: start: 20250501, end: 20250501
  4. adalilumab (humira) 40mg SC [Concomitant]
     Dates: start: 20250501, end: 20250501
  5. CRRT [Concomitant]
     Dates: start: 20250502, end: 20250503
  6. mechanical ventilation [Concomitant]
     Dates: start: 20250501, end: 20250503

REACTIONS (27)
  - Shock [None]
  - Respiratory failure [None]
  - Rash vesicular [None]
  - Fall [None]
  - Dyspnoea [None]
  - Pollakiuria [None]
  - Vomiting [None]
  - Hypoxia [None]
  - Blood pH decreased [None]
  - Hypothermia [None]
  - Hypotension [None]
  - Atrial fibrillation [None]
  - Shock [None]
  - Blood glucose increased [None]
  - White blood cell count decreased [None]
  - Haemoglobin decreased [None]
  - International normalised ratio increased [None]
  - Skin exfoliation [None]
  - Stevens-Johnson syndrome [None]
  - Toxic epidermal necrolysis [None]
  - Staphylococcal scalded skin syndrome [None]
  - Lactic acidosis [None]
  - Renal failure [None]
  - General physical health deterioration [None]
  - Distributive shock [None]
  - Agonal respiration [None]
  - Inflammation [None]

NARRATIVE: CASE EVENT DATE: 20250503
